FAERS Safety Report 4311749-3 (Version None)
Quarter: 2004Q1

REPORT INFORMATION
  Report Type: 
  Country: None (occurrence: None)
  Receive Date: 20040304
  Receipt Date: 20040304
  Transmission Date: 20041129
  Serious: Yes (Other)
  Sender: FDA-Public Use
  Company Number: None

PATIENT
  Age: 16 Year
  Sex: Male
  Weight: 90.7194 kg

DRUGS (1)
  1. ACCUTANE [Suspect]
     Indication: ACNE
     Dosage: 2 DAILY
     Dates: start: 19941001, end: 19960930

REACTIONS (3)
  - ARTHRITIS [None]
  - DEPRESSION [None]
  - PSORIASIS [None]
